FAERS Safety Report 16315181 (Version 1)
Quarter: 2019Q2

REPORT INFORMATION
  Report Type: Report from Study
  Country: CA (occurrence: CA)
  Receive Date: 20190515
  Receipt Date: 20190515
  Transmission Date: 20190711
  Serious: Yes (Other)
  Sender: FDA-Public Use
  Company Number: CA-GILEAD-2019-0406755

PATIENT
  Age: 42 Year
  Sex: Male

DRUGS (2)
  1. APO TENOFOVIR [Suspect]
     Active Substance: TENOFOVIR
     Indication: HEPATITIS B
     Dosage: UNK
     Route: 065
     Dates: start: 2018
  2. TENOFOVIR DISOPROXIL FUMARATE. [Suspect]
     Active Substance: TENOFOVIR DISOPROXIL FUMARATE
     Indication: HEPATITIS B
     Dosage: UNK
     Route: 048
     Dates: end: 2018

REACTIONS (3)
  - Suicidal ideation [Unknown]
  - Liver disorder [Not Recovered/Not Resolved]
  - Cardiac disorder [Not Recovered/Not Resolved]

NARRATIVE: CASE EVENT DATE: 2018
